FAERS Safety Report 23636929 (Version 1)
Quarter: 2024Q1

REPORT INFORMATION
  Report Type: Spontaneous
  Country: AR (occurrence: AR)
  Receive Date: 20240315
  Receipt Date: 20240315
  Transmission Date: 20240410
  Serious: Yes (Other)
  Sender: FDA-Public Use
  Company Number: AR-PFIZER INC-PV202400034889

PATIENT
  Age: 66 Year
  Sex: Female

DRUGS (2)
  1. AROMASIN [Suspect]
     Active Substance: EXEMESTANE
     Indication: Breast cancer metastatic
     Dosage: 25 MG, DAILY
     Dates: start: 20230927
  2. EVEROLIMUS [Suspect]
     Active Substance: EVEROLIMUS

REACTIONS (6)
  - Feeding disorder [Not Recovered/Not Resolved]
  - Weight decreased [Not Recovered/Not Resolved]
  - Tongue disorder [Not Recovered/Not Resolved]
  - Throat lesion [Not Recovered/Not Resolved]
  - Palatal disorder [Not Recovered/Not Resolved]
  - Malaise [Not Recovered/Not Resolved]
